FAERS Safety Report 21792773 (Version 1)
Quarter: 2022Q4

REPORT INFORMATION
  Report Type: Spontaneous
  Country: CN (occurrence: CN)
  Receive Date: 20221229
  Receipt Date: 20221229
  Transmission Date: 20230112
  Serious: Yes (Other)
  Sender: FDA-Public Use
  Company Number: None

PATIENT
  Age: 43 Year
  Sex: Female
  Weight: 50 kg

DRUGS (6)
  1. CYCLOPHOSPHAMIDE [Suspect]
     Active Substance: CYCLOPHOSPHAMIDE
     Indication: Chemotherapy
     Dosage: 800 MG, QD, NEOADJUVANT CHEMOTHERAPY WITH ^EC SEQUENTIAL T REGIMEN
     Route: 041
     Dates: start: 20221113, end: 20221113
  2. CYCLOPHOSPHAMIDE [Suspect]
     Active Substance: CYCLOPHOSPHAMIDE
     Indication: Invasive breast carcinoma
  3. EPIRUBICIN [Suspect]
     Active Substance: EPIRUBICIN
     Indication: Chemotherapy
     Dosage: 110 MG, QD, NEOADJUVANT CHEMOTHERAPY WITH ^EC SEQUENTIAL T REGIMEN
     Route: 041
     Dates: start: 20221113, end: 20221113
  4. EPIRUBICIN [Suspect]
     Active Substance: EPIRUBICIN
     Indication: Invasive breast carcinoma
  5. DOCETAXEL [Suspect]
     Active Substance: DOCETAXEL
     Indication: Chemotherapy
     Dosage: 110 MG, D1, EVERY 21 DAYS FOR 8 CYCLES, NEOADJUVANT CHEMOTHERAPY WITH ^EC SEQUENTIAL T^ REGIMEN
     Route: 065
  6. DOCETAXEL [Suspect]
     Active Substance: DOCETAXEL
     Indication: Invasive breast carcinoma

REACTIONS (5)
  - Drug-induced liver injury [Recovering/Resolving]
  - Gastrointestinal disorder [Unknown]
  - Granulocytopenia [Unknown]
  - Myelosuppression [Unknown]
  - Anaemia [Unknown]

NARRATIVE: CASE EVENT DATE: 20221204
